FAERS Safety Report 10783584 (Version 2)
Quarter: 2015Q1

REPORT INFORMATION
  Report Type: Spontaneous
  Country: US (occurrence: US)
  Receive Date: 20150210
  Receipt Date: 20150311
  Transmission Date: 20150721
  Serious: Yes (Other)
  Sender: FDA-Public Use
  Company Number: US-009507513-1502USA001553

PATIENT
  Age: 52 Year
  Sex: Male

DRUGS (4)
  1. EPINEPHRINE. [Concomitant]
     Active Substance: EPINEPHRINE
     Indication: ALLERGY TO ARTHROPOD STING
  2. ROCEPHIN [Concomitant]
     Active Substance: CEFTRIAXONE SODIUM
  3. SUCCINYLCHLORIDE INJECTION [Suspect]
     Active Substance: SUCCINYLCHOLINE
  4. VERSED [Concomitant]
     Active Substance: MIDAZOLAM HYDROCHLORIDE

REACTIONS (1)
  - Anaphylactic reaction [Unknown]
